FAERS Safety Report 10047252 (Version 2)
Quarter: 2014Q1

REPORT INFORMATION
  Report Type: Spontaneous
  Country: US (occurrence: US)
  Receive Date: 20140331
  Receipt Date: 20140331
  Transmission Date: 20141002
  Serious: No
  Sender: FDA-Public Use
  Company Number: US-MYLANLABS-2013S1024715

PATIENT
  Age: 45 Year
  Sex: Male

DRUGS (12)
  1. FENTANYL TRANSDERMAL SYSTEM [Suspect]
     Indication: ABDOMINAL PAIN
     Dosage: Q72HR
     Route: 062
     Dates: start: 201310
  2. INSULIN [Concomitant]
     Indication: DIABETES MELLITUS
     Route: 058
  3. METOCLOPRAMIDE [Concomitant]
  4. DICYCLOMINE [Concomitant]
  5. SIMVASTATIN [Concomitant]
     Indication: BLOOD CHOLESTEROL INCREASED
  6. HCTZ [Concomitant]
  7. RANITIDINE [Concomitant]
  8. GLYBURIDE [Concomitant]
     Indication: DIABETES MELLITUS
  9. PIOGLITAZONE [Concomitant]
  10. NASONEX [Concomitant]
  11. ULTRAM /00599202/ [Concomitant]
     Indication: PAIN
  12. ASA [Concomitant]

REACTIONS (1)
  - Restlessness [Not Recovered/Not Resolved]
